FAERS Safety Report 9611495 (Version 1)
Quarter: 2013Q4

REPORT INFORMATION
  Report Type: Spontaneous
  Country: DE (occurrence: DE)
  Receive Date: 20131010
  Receipt Date: 20131010
  Transmission Date: 20140711
  Serious: Yes (Other)
  Sender: FDA-Public Use
  Company Number: DE-009507513-1310DEU001529

PATIENT
  Age: 90 Year
  Sex: Male

DRUGS (1)
  1. TRUSOPT [Suspect]
     Indication: GLAUCOMA
     Route: 047

REACTIONS (3)
  - Hypoacusis [Not Recovered/Not Resolved]
  - Cough [Not Recovered/Not Resolved]
  - Eustachian tube obstruction [Not Recovered/Not Resolved]
